FAERS Safety Report 12961574 (Version 3)
Quarter: 2016Q4

REPORT INFORMATION
  Report Type: Spontaneous
  Country: CA (occurrence: CA)
  Receive Date: 20161121
  Receipt Date: 20161213
  Transmission Date: 20170207
  Serious: Yes (Hospitalization)
  Sender: FDA-Public Use
  Company Number: CA-PFIZER INC-2016521196

PATIENT
  Age: 75 Year
  Sex: Male

DRUGS (1)
  1. BENEFIX [Suspect]
     Active Substance: COAGULATION FACTOR IX RECOMBINANT HUMAN\ISOPROPYL ALCOHOL
     Indication: FACTOR IX DEFICIENCY
     Dosage: 4000 IU, UNK
     Route: 042

REACTIONS (4)
  - Hyperglycaemia [Recovered/Resolved]
  - Urinary tract infection [Unknown]
  - Somnolence [Unknown]
  - Drug dose omission [Unknown]

NARRATIVE: CASE EVENT DATE: 201611
